FAERS Safety Report 9358401 (Version 3)
Quarter: 2013Q4

REPORT INFORMATION
  Report Type: Spontaneous
  Country: US (occurrence: US)
  Receive Date: 20130620
  Receipt Date: 20131023
  Transmission Date: 20140711
  Serious: Yes (Hospitalization)
  Sender: FDA-Public Use
  Company Number: US-PERRIGO-13US005185

PATIENT
  Age: 68 Year
  Sex: Female
  Weight: 68.93 kg

DRUGS (1)
  1. LORATADINE 10 MG 612 [Suspect]
     Indication: HYPERSENSITIVITY
     Dosage: 10 MG, QD
     Route: 048
     Dates: start: 20130424, end: 20130501

REACTIONS (11)
  - Rash generalised [Unknown]
  - Skin exfoliation [Unknown]
  - Rash pruritic [Unknown]
  - Lymphadenopathy [Unknown]
  - Skin burning sensation [Unknown]
  - Insomnia [Unknown]
  - Conjunctivitis [Recovering/Resolving]
  - Vision blurred [Recovered/Resolved]
  - Pruritus [Unknown]
  - Pyrexia [Unknown]
  - Chills [Unknown]
